FAERS Safety Report 7711796-5 (Version None)
Quarter: 2011Q3

REPORT INFORMATION
  Report Type: 
  Country: None (occurrence: None)
  Receive Date: 20110826
  Receipt Date: 20110816
  Transmission Date: 20111222
  Serious: Yes (Hospitalization)
  Sender: FDA-Public Use
  Company Number: KR-SANOFI-AVENTIS-2011SA048199

PATIENT
  Age: 66 Year
  Sex: Male
  Weight: 67 kg

DRUGS (11)
  1. TORSEMIDE [Concomitant]
  2. CANDESARTAN CILEXETIL [Concomitant]
  3. TIANEPTINE [Concomitant]
  4. DRONEDARONE HCL [Suspect]
     Indication: ATRIAL FIBRILLATION
     Route: 048
     Dates: start: 20101112, end: 20110110
  5. ALL OTHER THERAPEUTIC PRODUCTS [Concomitant]
  6. RANITIDINE [Concomitant]
  7. PRAVASTATIN [Concomitant]
  8. DILTIAZEM [Concomitant]
     Dates: end: 20110307
  9. TORSEMIDE [Concomitant]
     Dates: start: 20101112, end: 20101212
  10. WARFARIN SODIUM [Concomitant]
  11. MAGNESIUM OXIDE [Concomitant]

REACTIONS (2)
  - MICROVASCULAR ANGINA [None]
  - ABDOMINAL PAIN UPPER [None]
